FAERS Safety Report 4844622-2 (Version None)
Quarter: 2005Q4

REPORT INFORMATION
  Report Type: 
  Country: None (occurrence: None)
  Receive Date: 20051130
  Receipt Date: 20051130
  Transmission Date: 20060501
  Serious: Yes (Hospitalization)
  Sender: FDA-Public Use
  Company Number: None

PATIENT
  Age: 55 Year
  Sex: Male
  Weight: 58.5 kg

DRUGS (1)
  1. CETUXIMAB (C275) [Suspect]
     Indication: NON-SMALL CELL LUNG CANCER
     Dosage: 250 MG IV WEEKLY
     Route: 042
     Dates: start: 20050824, end: 20051116

REACTIONS (4)
  - LOSS OF CONSCIOUSNESS [None]
  - LUNG NEOPLASM MALIGNANT [None]
  - PNEUMONIA ASPIRATION [None]
  - RESPIRATORY DISTRESS [None]
